FAERS Safety Report 6872626-7 (Version None)
Quarter: 2010Q3

REPORT INFORMATION
  Report Type: 
  Country: None (occurrence: None)
  Receive Date: 20100721
  Receipt Date: 20100709
  Transmission Date: 20110219
  Serious: Yes (Other)
  Sender: FDA-Public Use
  Company Number: B0665823A

PATIENT
  Age: 27 Year
  Sex: Female

DRUGS (3)
  1. LAMIVUDINE -HIV (FORMULATION UNKNOWN) (GENERIC) (LAMIVUDINE-HIV) [Suspect]
     Indication: HIV INFECTION
  2. TENOFOVIR DISOPROXIL FUMARATE [Suspect]
     Indication: HIV INFECTION
  3. LOPINAVIR AND RITONAVIR [Suspect]
     Indication: HIV INFECTION

REACTIONS (4)
  - CENTRAL NERVOUS SYSTEM LESION [None]
  - JC VIRUS TEST POSITIVE [None]
  - PROGRESSIVE MULTIFOCAL LEUKOENCEPHALOPATHY [None]
  - VIITH NERVE PARALYSIS [None]
